FAERS Safety Report 19693544 (Version 2)
Quarter: 2021Q3

REPORT INFORMATION
  Report Type: Report from Study
  Country: None (occurrence: US)
  Receive Date: 20210812
  Receipt Date: 20210825
  Transmission Date: 20211014
  Serious: Yes (Other)
  Sender: FDA-Public Use
  Company Number: US-ABBVIE-21K-163-3990050-00

PATIENT
  Age: 64 Year
  Sex: Female
  Weight: 62.2 kg

DRUGS (6)
  1. BOTOX [Suspect]
     Active Substance: ONABOTULINUMTOXINA
     Indication: PRODUCT USED FOR UNKNOWN INDICATION
     Route: 065
  2. HUMIRA [Suspect]
     Active Substance: ADALIMUMAB
     Route: 058
     Dates: start: 202011
  3. AMITRIPTYLINE [Concomitant]
     Active Substance: AMITRIPTYLINE
     Indication: IRRITABLE BOWEL SYNDROME
     Route: 065
  4. FENOFIBRATE. [Concomitant]
     Active Substance: FENOFIBRATE
     Indication: BLOOD CHOLESTEROL
     Route: 065
  5. HUMIRA [Suspect]
     Active Substance: ADALIMUMAB
     Indication: CROHN^S DISEASE
     Dosage: CITRATE FREE
     Route: 058
     Dates: start: 2014, end: 202010
  6. COVID?19 VACCINE [Concomitant]
     Indication: COVID-19 IMMUNISATION
     Route: 030
     Dates: start: 20210818, end: 20210818

REACTIONS (10)
  - Palpitations [Unknown]
  - Malaise [Recovered/Resolved]
  - Stenosis [Unknown]
  - Skin laxity [Recovering/Resolving]
  - Large intestine polyp [Recovered/Resolved]
  - Weight decreased [Unknown]
  - Dehydration [Unknown]
  - Diarrhoea [Not Recovered/Not Resolved]
  - Irritable bowel syndrome [Not Recovered/Not Resolved]
  - Feeding disorder [Unknown]

NARRATIVE: CASE EVENT DATE: 202003
